FAERS Safety Report 8094096-6 (Version None)
Quarter: 2012Q1

REPORT INFORMATION
  Report Type: 
  Country: None (occurrence: None)
  Receive Date: 20120131
  Receipt Date: 20120125
  Transmission Date: 20120608
  Serious: Yes (Hospitalization, Other)
  Sender: FDA-Public Use
  Company Number: GB-BRISTOL-MYERS SQUIBB COMPANY-16330292

PATIENT
  Age: 26 Year
  Sex: Male

DRUGS (1)
  1. ABILIFY [Suspect]
     Indication: SCHIZOPHRENIA
     Dosage: STARTED 18 MONTHS AGO
     Route: 048
     Dates: start: 20101101

REACTIONS (3)
  - TREATMENT NONCOMPLIANCE [None]
  - MENTAL IMPAIRMENT [None]
  - DRUG DOSE OMISSION [None]
